FAERS Safety Report 19489214 (Version 1)
Quarter: 2021Q3

REPORT INFORMATION
  Report Type: Spontaneous
  Country: US (occurrence: US)
  Receive Date: 20210703
  Receipt Date: 20210703
  Transmission Date: 20211014
  Serious: No
  Sender: FDA-Public Use
  Company Number: US-AMGEN-USASP2021098072

PATIENT
  Sex: Female
  Weight: 54.42 kg

DRUGS (1)
  1. NEULASTA [Suspect]
     Active Substance: PEGFILGRASTIM
     Indication: NEUTROPENIA
     Dosage: UNK , AFTER CHEMO
     Route: 065
     Dates: start: 20210617

REACTIONS (5)
  - Pyrexia [Unknown]
  - Back pain [Not Recovered/Not Resolved]
  - White blood cell count increased [Unknown]
  - Bone pain [Unknown]
  - Constipation [Recovering/Resolving]

NARRATIVE: CASE EVENT DATE: 202106
